FAERS Safety Report 23696063 (Version 1)
Quarter: 2024Q2

REPORT INFORMATION
  Report Type: Spontaneous
  Country: GB (occurrence: GB)
  Receive Date: 20240402
  Receipt Date: 20240402
  Transmission Date: 20240716
  Serious: Yes (Hospitalization)
  Sender: FDA-Public Use
  Company Number: GB-002147023-NVSC2024GB068852

PATIENT
  Age: 21 Year
  Sex: Male

DRUGS (4)
  1. CYCLOSPORINE [Suspect]
     Active Substance: CYCLOSPORINE
     Indication: Product used for unknown indication
     Dosage: 4 MG/KG
     Route: 065
     Dates: start: 2017
  2. CYCLOSPORINE [Suspect]
     Active Substance: CYCLOSPORINE
     Dosage: 5 MG/KG
     Route: 065
     Dates: start: 2018, end: 2020
  3. PREDNISOLONE [Suspect]
     Active Substance: PREDNISOLONE
     Indication: Product used for unknown indication
     Dosage: UNK
     Route: 065
  4. ICHTHAMMOL [Concomitant]
     Active Substance: ICHTHAMMOL
     Indication: Product used for unknown indication
     Dosage: UNK
     Route: 061
     Dates: start: 2019

REACTIONS (6)
  - Neurodermatitis [Unknown]
  - Skin striae [Unknown]
  - Nodule [Unknown]
  - Depressed mood [Unknown]
  - COVID-19 [Unknown]
  - Drug ineffective [Unknown]

NARRATIVE: CASE EVENT DATE: 20180101
